FAERS Safety Report 9859417 (Version 1)
Quarter: 2014Q1

REPORT INFORMATION
  Report Type: Spontaneous
  Country: PK (occurrence: None)
  Receive Date: 20140128
  Receipt Date: 20140128
  Transmission Date: 20141002
  Serious: Yes (Hospitalization)
  Sender: FDA-Public Use
  Company Number: 2014P1000431

PATIENT
  Age: 10 Year
  Sex: Male
  Weight: 29 kg

DRUGS (4)
  1. HYDROCORTISONE [Suspect]
     Indication: ASTHMA
     Route: 030
     Dates: start: 201209
  2. SALBUTAMOL [Concomitant]
  3. IPRATROPIUM [Concomitant]
  4. MONTELUKAST [Concomitant]

REACTIONS (11)
  - Nausea [None]
  - Vomiting [None]
  - Pallor [None]
  - Abdominal pain [None]
  - Palpitations [None]
  - Headache [None]
  - Eyelid oedema [None]
  - Lip swelling [None]
  - Tachycardia [None]
  - Hypotension [None]
  - Hypersensitivity [None]
